FAERS Safety Report 20664796 (Version 2)
Quarter: 2022Q2

REPORT INFORMATION
  Report Type: Report from Study
  Country: US (occurrence: US)
  Receive Date: 20220401
  Receipt Date: 20220411
  Transmission Date: 20220721
  Serious: Yes (Other)
  Sender: FDA-Public Use
  Company Number: US-PFIZER INC-202101224324

PATIENT
  Age: 72 Year
  Sex: Female

DRUGS (4)
  1. IBRANCE [Suspect]
     Active Substance: PALBOCICLIB
     Indication: Breast cancer female
     Dosage: 125 MG, CYCLIC (21 DAYS ON 7 DAYS OFF)
     Route: 048
     Dates: start: 20210907, end: 202201
  2. IBRANCE [Suspect]
     Active Substance: PALBOCICLIB
     Dosage: 125 MG, CYCLIC (DAILY FOR 21 DAYS ON 7 DAYS OFF.)
     Route: 048
     Dates: start: 20220307, end: 20220331
  3. LETROZOLE [Concomitant]
     Active Substance: LETROZOLE
     Dosage: UNK, DAILY
  4. GABAPENTIN [Concomitant]
     Active Substance: GABAPENTIN
     Indication: Sleep disorder
     Dosage: UNK

REACTIONS (32)
  - Haemorrhage [Unknown]
  - Haematochezia [Unknown]
  - Loss of consciousness [Unknown]
  - Fatigue [Not Recovered/Not Resolved]
  - Decreased appetite [Not Recovered/Not Resolved]
  - Taste disorder [Unknown]
  - Bronchitis [Recovering/Resolving]
  - Asthenia [Unknown]
  - Cough [Not Recovered/Not Resolved]
  - Lymphoedema [Unknown]
  - Oedema [Unknown]
  - Chest pain [Recovered/Resolved]
  - Disease recurrence [Recovered/Resolved]
  - Chest discomfort [Unknown]
  - Dyspnoea [Not Recovered/Not Resolved]
  - Dyspnoea exertional [Not Recovered/Not Resolved]
  - Weight decreased [Recovering/Resolving]
  - Anxiety [Not Recovered/Not Resolved]
  - Pruritus [Unknown]
  - Urinary incontinence [Not Recovered/Not Resolved]
  - Hot flush [Unknown]
  - Malaise [Not Recovered/Not Resolved]
  - Epigastric discomfort [Unknown]
  - Amnesia [Unknown]
  - Gait disturbance [Unknown]
  - Back pain [Unknown]
  - Feeling of body temperature change [Unknown]
  - Somnolence [Unknown]
  - Skin abrasion [Unknown]
  - Insomnia [Unknown]
  - Neoplasm progression [Unknown]
  - Product dose omission in error [Unknown]

NARRATIVE: CASE EVENT DATE: 20210901
